FAERS Safety Report 18098079 (Version 1)
Quarter: 2020Q3

REPORT INFORMATION
  Report Type: Spontaneous
  Country: US (occurrence: US)
  Receive Date: 20200731
  Receipt Date: 20200731
  Transmission Date: 20201103
  Serious: No
  Sender: FDA-Public Use
  Company Number: US-BIOGEN-2020BI00895851

PATIENT
  Age: 44 Year
  Sex: Female

DRUGS (1)
  1. TECFIDERA [Suspect]
     Active Substance: DIMETHYL FUMARATE
     Indication: MULTIPLE SCLEROSIS
     Route: 065
     Dates: start: 20200611

REACTIONS (10)
  - Arthralgia [Unknown]
  - Frustration tolerance decreased [Unknown]
  - Gastrooesophageal reflux disease [Unknown]
  - Weight increased [Unknown]
  - Nausea [Unknown]
  - Gait disturbance [Unknown]
  - Vomiting [Unknown]
  - Pain [Unknown]
  - Hot flush [Unknown]
  - Drug ineffective [Unknown]

NARRATIVE: CASE EVENT DATE: 20200616
